FAERS Safety Report 7812512-9 (Version None)
Quarter: 2011Q4

REPORT INFORMATION
  Report Type: 
  Country: None (occurrence: None)
  Receive Date: 20111013
  Receipt Date: 20111003
  Transmission Date: 20120403
  Serious: Yes (Hospitalization)
  Sender: FDA-Public Use
  Company Number: US-BAYER-2010-005859

PATIENT
  Age: 29 Year
  Sex: Female
  Weight: 66 kg

DRUGS (13)
  1. IMITREX [Concomitant]
     Indication: HEADACHE
     Dosage: UNK
     Dates: start: 20050101
  2. METHYLPREDNISOLONE [Concomitant]
     Dosage: 4 MG, UNK
     Dates: start: 20050411
  3. MULTI-VITAMINS [Concomitant]
     Dosage: UNK
     Dates: start: 20000101, end: 20070101
  4. TYLENOL-500 [Concomitant]
     Indication: PAIN
     Dosage: 500 MG, UNK
     Dates: start: 20050501, end: 20050701
  5. ORTHO CYCLEN-28 [Concomitant]
     Dosage: UNK
     Dates: start: 20050409, end: 20051212
  6. HYDROCODONE BITARTRATE AND ACETAMINOPHEN [Concomitant]
     Dosage: UNK
     Dates: start: 20050418
  7. ASCORBIC ACID [Concomitant]
     Dosage: UNK UNK, QD
  8. ZITHROMAX [Concomitant]
     Dosage: 250 MG, UNK
     Dates: start: 20050331
  9. PHENAZOPYRIDINE HCL TAB [Concomitant]
     Dosage: 200 MG, UNK
     Dates: start: 20050515
  10. YAZ [Suspect]
     Indication: ORAL CONTRACEPTION
     Dosage: UNK
     Dates: start: 20050401, end: 20050801
  11. YAZ [Suspect]
     Indication: PREMENSTRUAL SYNDROME
     Dosage: UNK
     Dates: start: 20071001, end: 20080101
  12. MOTRIN [Concomitant]
     Indication: PAIN
     Dosage: 400 MG, UNK
     Dates: start: 20050501, end: 20050701
  13. CIPROFLOXACIN [Concomitant]
     Dosage: 500 MG, UNK
     Dates: start: 20050515

REACTIONS (5)
  - CHOLELITHIASIS [None]
  - ANXIETY [None]
  - CHOLECYSTITIS CHRONIC [None]
  - PAIN [None]
  - ABDOMINAL PAIN [None]
